FAERS Safety Report 7942674-4 (Version None)
Quarter: 2011Q4

REPORT INFORMATION
  Report Type: 
  Country: None (occurrence: None)
  Receive Date: 20111128
  Receipt Date: 20111123
  Transmission Date: 20120403
  Serious: Yes (Other)
  Sender: FDA-Public Use
  Company Number: US-PFIZER INC-2011286915

PATIENT
  Sex: Male

DRUGS (1)
  1. VIAGRA [Suspect]
     Indication: ERECTILE DYSFUNCTION
     Dosage: 400 MG, UNK
     Route: 048
     Dates: start: 20111123

REACTIONS (2)
  - ACCIDENTAL OVERDOSE [None]
  - ERECTION INCREASED [None]
